FAERS Safety Report 9170990 (Version 1)
Quarter: 2013Q1

REPORT INFORMATION
  Report Type: Spontaneous
  Country: US (occurrence: US)
  Receive Date: 20130319
  Receipt Date: 20130319
  Transmission Date: 20140127
  Serious: Yes (Hospitalization, Other)
  Sender: FDA-Public Use
  Company Number: US-TEVA-392293USA

PATIENT
  Age: 73 Year
  Sex: Female

DRUGS (3)
  1. WARFARIN [Suspect]
     Indication: ATRIAL FIBRILLATION
     Dosage: 2.5 MILLIGRAM DAILY;
     Dates: start: 200406
  2. DILTIAZEM [Concomitant]
  3. SIMVASTATIN [Concomitant]

REACTIONS (2)
  - Small intestinal obstruction [Recovered/Resolved]
  - International normalised ratio fluctuation [Unknown]
